FAERS Safety Report 9391441 (Version 1)
Quarter: 2013Q3

REPORT INFORMATION
  Report Type: Spontaneous
  Country: US (occurrence: US)
  Receive Date: 20130709
  Receipt Date: 20130709
  Transmission Date: 20140515
  Serious: No
  Sender: FDA-Public Use
  Company Number: US-009507513-1307USA003564

PATIENT
  Sex: 0

DRUGS (3)
  1. JANUVIA [Suspect]
     Dosage: UNK
     Route: 048
  2. AMARYL [Suspect]
  3. METFORMIN [Suspect]

REACTIONS (1)
  - Glycosylated haemoglobin increased [Unknown]
